FAERS Safety Report 7803402-6 (Version None)
Quarter: 2011Q4

REPORT INFORMATION
  Report Type: 
  Country: None (occurrence: None)
  Receive Date: 20111007
  Receipt Date: 20100914
  Transmission Date: 20120403
  Serious: No
  Sender: FDA-Public Use
  Company Number: US-BAYER-201033626NA

PATIENT
  Age: 56 Year
  Sex: Male

DRUGS (9)
  1. AMLODIPINE [Concomitant]
     Indication: HYPERTENSION
     Dosage: UNK
  2. DIOVAN [Concomitant]
     Indication: HYPERTENSION
     Dosage: UNK
  3. LIPITOR [Concomitant]
     Indication: BLOOD CHOLESTEROL INCREASED
     Dosage: UNK
  4. CYMBALTA [Concomitant]
     Indication: DEPRESSION
     Dosage: UNK
  5. METOPROLOL TARTRATE [Concomitant]
     Indication: HYPERTENSION
     Dosage: UNK
  6. BUSPAR [Concomitant]
     Indication: DEPRESSION
     Dosage: UNK
  7. LEVITRA [Suspect]
     Dosage: 10 MG, ONCE
     Route: 048
     Dates: start: 20100914
  8. HYDROCHLOROTHIAZIDE [Concomitant]
     Indication: HYPERTENSION
     Dosage: UNK
  9. ALCOHOL [Concomitant]

REACTIONS (2)
  - ERECTILE DYSFUNCTION [None]
  - NERVOUSNESS [None]
